FAERS Safety Report 12448716 (Version 2)
Quarter: 2016Q2

REPORT INFORMATION
  Report Type: Spontaneous
  Country: KR (occurrence: KR)
  Receive Date: 20160608
  Receipt Date: 20160613
  Transmission Date: 20160815
  Serious: No
  Sender: FDA-Public Use
  Company Number: KR-009507513-1606KOR003424

PATIENT
  Age: 49 Year
  Sex: Male
  Weight: 77.2 kg

DRUGS (25)
  1. ENDOXAN [Concomitant]
     Active Substance: CYCLOPHOSPHAMIDE
     Indication: LUNG NEOPLASM MALIGNANT
     Dosage: 1440 MG, ONCE; CYCLE 1
     Route: 042
     Dates: start: 20150428, end: 20150428
  2. URSA TABLETS [Concomitant]
     Indication: CHRONIC HEPATITIS C
     Dosage: 3 TABLET, TID
     Route: 048
     Dates: start: 2015, end: 2015
  3. TAMIPOOL [Concomitant]
     Active Substance: VITAMINS
     Indication: PROPHYLAXIS
     Dosage: 1 VIAL, ONCE
     Route: 042
     Dates: start: 20150430, end: 20150430
  4. EMEND (FOSAPREPITANT DIMEGLUMINE) [Suspect]
     Active Substance: FOSAPREPITANT DIMEGLUMINE
     Indication: PROPHYLAXIS OF NAUSEA AND VOMITING
     Dosage: 150 MG, ONCE
     Route: 042
     Dates: start: 20150506, end: 20150506
  5. DOXORUBICIN HYDROCHLORIDE. [Concomitant]
     Active Substance: DOXORUBICIN HYDROCHLORIDE
     Indication: LUNG NEOPLASM MALIGNANT
     Dosage: 50 MG, ONCE; CYCLE 1
     Route: 042
     Dates: start: 20150428, end: 20150428
  6. VINCRISTINE SULFATE. [Concomitant]
     Active Substance: VINCRISTINE SULFATE
     Indication: LUNG NEOPLASM MALIGNANT
     Dosage: STRENGTH: 1MG/1 ML; 2 MG, ONCE; CYCLE 1
     Route: 042
     Dates: start: 20150428, end: 20150428
  7. CONCOR [Concomitant]
     Active Substance: BISOPROLOL FUMARATE
     Indication: HYPERTENSION
     Dosage: 1 TABLET, QD
     Route: 048
     Dates: start: 20150424, end: 2015
  8. AMODIPIN [Concomitant]
     Indication: HYPERTENSION
     Dosage: 1 TABLET, QD
     Route: 048
     Dates: start: 2015, end: 2015
  9. ALDACTONE [Concomitant]
     Active Substance: SPIRONOLACTONE
     Indication: ASCITES
     Dosage: 4 TABLET, QD
     Route: 048
     Dates: start: 20150419, end: 20150421
  10. ADELAVIN (FLAVIN ADENINE DINUCLEOTIDE (+) LIVER EXTRACT) [Concomitant]
     Indication: CHRONIC HEPATITIS C
     Dosage: 2 ML, QD
     Route: 042
     Dates: start: 20150423, end: 201505
  11. SURFOLASE [Concomitant]
     Indication: ATELECTASIS
     Dosage: 2 CAPSULE, BID
     Route: 048
     Dates: start: 20150427, end: 20150430
  12. CARDURA XL [Concomitant]
     Active Substance: DOXAZOSIN MESYLATE
     Indication: HYPERTENSION
     Dosage: 1 TABLET, QD
     Route: 048
     Dates: start: 2015, end: 2015
  13. ALOXI [Concomitant]
     Active Substance: PALONOSETRON HYDROCHLORIDE
     Indication: PREMEDICATION
     Dosage: 0.25 MG, ONCE
     Route: 042
     Dates: start: 20150428, end: 20150428
  14. ALGIRON [Concomitant]
     Indication: ABDOMINAL PAIN
     Dosage: 3 DF, TID
     Route: 048
     Dates: start: 20150414, end: 201505
  15. AMINOPOLY H [Suspect]
     Active Substance: AMINO ACIDS
     Indication: PROPHYLAXIS
     Dosage: 500 ML, ONCE
     Route: 042
     Dates: start: 20150511, end: 20150511
  16. MABTHERA [Concomitant]
     Active Substance: RITUXIMAB
     Indication: LUNG NEOPLASM MALIGNANT
     Dosage: 720 MG, ONCE; CYCLE 1
     Route: 042
     Dates: start: 20150428, end: 20150428
  17. CONCOR [Concomitant]
     Active Substance: BISOPROLOL FUMARATE
     Dosage: 1 DF, QD
     Route: 048
     Dates: start: 2015, end: 2015
  18. MUCOSTA [Concomitant]
     Active Substance: REBAMIPIDE
     Indication: PROPHYLAXIS AGAINST GASTROINTESTINAL ULCER
     Dosage: 3 TABLET, TID
     Route: 048
     Dates: start: 20150414, end: 201505
  19. MAGNESIUM OXIDE. [Concomitant]
     Active Substance: MAGNESIUM OXIDE
     Indication: PROPHYLAXIS AGAINST GASTROINTESTINAL ULCER
     Dosage: 3 TABLET, TID
     Route: 048
     Dates: start: 20150414, end: 201505
  20. LASIX [Concomitant]
     Active Substance: FUROSEMIDE
     Indication: ASCITES
     Dosage: 1 TABLET, QD
     Route: 048
     Dates: start: 20150419, end: 20150421
  21. CODAEWON FORTE [Concomitant]
     Indication: COUGH
     Dosage: 20 ML, QID
     Route: 048
     Dates: start: 20150424, end: 20150511
  22. ERDOS [Concomitant]
     Indication: COUGH
     Dosage: 3 CAPSULE, TID
     Route: 048
     Dates: start: 20150427, end: 20150504
  23. SOLONDO [Concomitant]
     Active Substance: PREDNISOLONE
     Indication: PREMEDICATION
     Dosage: 100 MG, QD
     Route: 048
     Dates: start: 20150428, end: 20150502
  24. LIVITAL [Concomitant]
     Indication: CHRONIC HEPATITIS C
     Dosage: 3 TABLET, TID
     Route: 048
     Dates: start: 2015, end: 2015
  25. ULISTIN [Concomitant]
     Active Substance: ULINASTATIN
     Indication: ATELECTASIS
     Dosage: STRENGTH:100000 IU/ 2 ML; 1 AMPLE; QD
     Route: 042
     Dates: start: 20150427, end: 20150428

REACTIONS (5)
  - Pain [Not Recovered/Not Resolved]
  - Sleep disorder [Recovering/Resolving]
  - Neutrophil count decreased [Recovering/Resolving]
  - Diarrhoea [Recovered/Resolved]
  - Oropharyngeal pain [Recovering/Resolving]

NARRATIVE: CASE EVENT DATE: 201505
